FAERS Safety Report 8515207-1 (Version None)
Quarter: 2012Q3

REPORT INFORMATION
  Report Type: 
  Country: None (occurrence: None)
  Receive Date: 20120717
  Receipt Date: 20120712
  Transmission Date: 20120928
  Serious: Yes (Other)
  Sender: FDA-Public Use
  Company Number: GB-GLAXOSMITHKLINE-B0815161A

PATIENT
  Age: 49 Year
  Sex: Female

DRUGS (4)
  1. POTIGA [Suspect]
     Indication: EPILEPSY
     Dosage: 50MG THREE TIMES PER DAY
     Route: 065
     Dates: start: 20120601, end: 20120701
  2. LAMOTRIGINE [Concomitant]
     Indication: EPILEPSY
  3. TOPIRAMATE [Concomitant]
     Indication: EPILEPSY
  4. PIZOTIFEN [Concomitant]
     Indication: MIGRAINE

REACTIONS (1)
  - CONVULSION [None]
